FAERS Safety Report 12954907 (Version 2)
Quarter: 2019Q2

REPORT INFORMATION
  Report Type: Spontaneous
  Country: US (occurrence: US)
  Receive Date: 20161118
  Receipt Date: 20190607
  Transmission Date: 20190711
  Serious: Yes (Other)
  Sender: FDA-Public Use
  Company Number: US-BAYER-2016-206535

PATIENT
  Age: 58 Year
  Sex: Female

DRUGS (1)
  1. BAYER LOW DOSE [Suspect]
     Active Substance: ASPIRIN
     Indication: ROUTINE HEALTH MAINTENANCE
     Dosage: 1 DF, QD
     Route: 048
     Dates: start: 2006, end: 201610

REACTIONS (8)
  - Pruritus [Recovered/Resolved]
  - Off label use [None]
  - Multiple allergies [None]
  - Tinnitus [Recovering/Resolving]
  - Product use in unapproved indication [None]
  - Reye^s syndrome [Unknown]
  - Head discomfort [Recovered/Resolved]
  - Asthma [None]

NARRATIVE: CASE EVENT DATE: 2006
